FAERS Safety Report 5197946-6 (Version None)
Quarter: 2007Q1

REPORT INFORMATION
  Report Type: 
  Country: None (occurrence: None)
  Receive Date: 20070104
  Receipt Date: 20061227
  Transmission Date: 20070707
  Serious: Yes (Life-Threatening, Hospitalization)
  Sender: FDA-Public Use
  Company Number: JP-JNJFOC-20050906464

PATIENT
  Sex: Male
  Weight: 68 kg

DRUGS (8)
  1. REMICADE [Suspect]
     Route: 042
  2. REMICADE [Suspect]
     Route: 042
  3. REMICADE [Suspect]
     Route: 042
  4. REMICADE [Suspect]
     Indication: CROHN'S DISEASE
     Route: 042
  5. IMURAN [Suspect]
     Indication: CROHN'S DISEASE
     Route: 048
  6. PENTASA [Concomitant]
     Indication: CROHN'S DISEASE
     Route: 048
  7. LAC B [Concomitant]
     Route: 048
  8. FERROMIA [Concomitant]
     Route: 048

REACTIONS (4)
  - ABDOMINAL PAIN [None]
  - LARGE INTESTINE CARCINOMA [None]
  - MELAENA [None]
  - PNEUMONIA FUNGAL [None]
